FAERS Safety Report 6625738-7 (Version None)
Quarter: 2010Q1

REPORT INFORMATION
  Report Type: 
  Country: None (occurrence: None)
  Receive Date: 20100310
  Receipt Date: 20100303
  Transmission Date: 20100710
  Serious: Yes (Other)
  Sender: FDA-Public Use
  Company Number: US-AMGEN-KDL397022

PATIENT
  Sex: Male
  Weight: 111.7 kg

DRUGS (7)
  1. PROCRIT [Suspect]
     Indication: MYELODYSPLASTIC SYNDROME
     Route: 058
     Dates: start: 20061101
  2. GEMFIBROZIL [Concomitant]
  3. ACTOS [Concomitant]
  4. GABAPENTIN [Concomitant]
  5. ALENDRONATE SODIUM [Concomitant]
  6. DIOVAN [Concomitant]
  7. FOSAMAX [Concomitant]

REACTIONS (2)
  - APLASIA PURE RED CELL [None]
  - NO THERAPEUTIC RESPONSE [None]
